FAERS Safety Report 7068218-X (Version None)
Quarter: 2010Q4

REPORT INFORMATION
  Report Type: 
  Country: None (occurrence: None)
  Receive Date: 20101027
  Receipt Date: 20101027
  Transmission Date: 20110411
  Serious: Yes (Other)
  Sender: FDA-Public Use
  Company Number: None

PATIENT
  Age: 35 Year
  Sex: Female
  Weight: 77.1115 kg

DRUGS (1)
  1. QUASENSE WATSON [Suspect]
     Indication: CONTRACEPTION
     Dosage: 1 PILL DAILEY
     Dates: start: 20080901, end: 20100919

REACTIONS (9)
  - ANXIETY [None]
  - DEPRESSION [None]
  - DIARRHOEA [None]
  - DIZZINESS [None]
  - LOSS OF LIBIDO [None]
  - MIGRAINE [None]
  - NAUSEA [None]
  - PANIC ATTACK [None]
  - VOMITING [None]
